FAERS Safety Report 7594235-7 (Version None)
Quarter: 2011Q3

REPORT INFORMATION
  Report Type: 
  Country: None (occurrence: None)
  Receive Date: 20110706
  Receipt Date: 20110627
  Transmission Date: 20111222
  Serious: Yes (Other)
  Sender: FDA-Public Use
  Company Number: US-AMGEN-USASP2011032900

PATIENT
  Age: 37 Year
  Sex: Female

DRUGS (2)
  1. ENBREL [Suspect]
     Indication: PSORIASIS
  2. ENBREL [Suspect]
     Indication: PSORIATIC ARTHROPATHY
     Dosage: 50 MG, QWK
     Dates: start: 20081008

REACTIONS (15)
  - OROPHARYNGEAL PAIN [None]
  - RETCHING [None]
  - SENSATION OF FOREIGN BODY [None]
  - STREPTOCOCCAL INFECTION [None]
  - PHOTOPHOBIA [None]
  - POST PROCEDURAL HAEMORRHAGE [None]
  - SINUSITIS FUNGAL [None]
  - HEADACHE [None]
  - DYSPHAGIA [None]
  - SWELLING FACE [None]
  - IMPAIRED HEALING [None]
  - PARANASAL SINUS HYPERSECRETION [None]
  - CANDIDIASIS [None]
  - PHARYNGEAL OEDEMA [None]
  - WEIGHT DECREASED [None]
